FAERS Safety Report 15533457 (Version 1)
Quarter: 2018Q4

REPORT INFORMATION
  Report Type: Spontaneous
  Country: ES (occurrence: ES)
  Receive Date: 20181019
  Receipt Date: 20181019
  Transmission Date: 20190205
  Serious: Yes (Other)
  Sender: FDA-Public Use
  Company Number: ES-JNJFOC-20181027840

PATIENT
  Age: 59 Year
  Sex: Female

DRUGS (3)
  1. ENANTYUM [Suspect]
     Active Substance: DEXKETOPROFEN TROMETAMOL
     Indication: OTITIS MEDIA
     Route: 048
     Dates: start: 20180809, end: 20180809
  2. ZALDIAR [Suspect]
     Active Substance: ACETAMINOPHEN\TRAMADOL HYDROCHLORIDE
     Indication: OTITIS MEDIA
     Route: 048
     Dates: start: 20180809, end: 20180809
  3. CLARITROMICINA [Suspect]
     Active Substance: CLARITHROMYCIN
     Indication: OTITIS MEDIA
     Route: 048
     Dates: start: 20180809, end: 20180809

REACTIONS (5)
  - Swollen tongue [Recovered/Resolved]
  - Diarrhoea [Recovered/Resolved]
  - Rectal haemorrhage [Recovered/Resolved]
  - Muscular weakness [Recovered/Resolved]
  - Dyspepsia [Recovered/Resolved]

NARRATIVE: CASE EVENT DATE: 20180809
